FAERS Safety Report 9428168 (Version 1)
Quarter: 2013Q3

REPORT INFORMATION
  Report Type: Spontaneous
  Country: US (occurrence: US)
  Receive Date: 20130730
  Receipt Date: 20130730
  Transmission Date: 20140515
  Serious: No
  Sender: FDA-Public Use
  Company Number: US-009507513-1307USA016191

PATIENT
  Age: 61 Year
  Sex: Male

DRUGS (1)
  1. JANUMET [Suspect]
     Indication: DIABETES MELLITUS
     Dosage: 50/1000
     Route: 048
     Dates: start: 201307, end: 201307

REACTIONS (2)
  - Myalgia [Recovering/Resolving]
  - Pain in extremity [Recovering/Resolving]
